FAERS Safety Report 11646469 (Version 1)
Quarter: 2015Q4

REPORT INFORMATION
  Report Type: Spontaneous
  Country: US (occurrence: US)
  Receive Date: 20151020
  Receipt Date: 20151020
  Transmission Date: 20160304
  Serious: No
  Sender: FDA-Public Use
  Company Number: US-ROCHE-1623154

PATIENT
  Sex: Female

DRUGS (4)
  1. ESBRIET [Suspect]
     Active Substance: PIRFENIDONE
     Indication: IDIOPATHIC PULMONARY FIBROSIS
     Dosage: 267MG CAPSULE X 3 CAPSULES THRICE A DAY
     Route: 048
     Dates: start: 20150603, end: 20150815
  2. ASPRIN [Concomitant]
     Active Substance: ASPIRIN
     Dosage: 81MG TABLET X 1 EVERY OTHER DAY
     Route: 065
  3. ALBUTEROL. [Concomitant]
     Active Substance: ALBUTEROL
     Dosage: 3-4 TIMES A DAY
     Route: 065
  4. TAMIFLU [Suspect]
     Active Substance: OSELTAMIVIR PHOSPHATE
     Indication: PRODUCT USED FOR UNKNOWN INDICATION
     Route: 065

REACTIONS (11)
  - Dyspepsia [Unknown]
  - Headache [Unknown]
  - Abdominal pain [Unknown]
  - Musculoskeletal chest pain [Unknown]
  - Nausea [Unknown]
  - Hypersomnia [Unknown]
  - Productive cough [Unknown]
  - Malaise [Unknown]
  - Gastrooesophageal reflux disease [Unknown]
  - Abdominal pain upper [Unknown]
  - Fatigue [Unknown]
